FAERS Safety Report 9511776 (Version 1)
Quarter: 2013Q3

REPORT INFORMATION
  Report Type: Spontaneous
  Country: US (occurrence: None)
  Receive Date: 20130909
  Receipt Date: 20130909
  Transmission Date: 20140515
  Serious: Yes (Hospitalization, Disabling, Other)
  Sender: FDA-Public Use
  Company Number: None

PATIENT
  Age: 36 Year
  Sex: Female
  Weight: 68.04 kg

DRUGS (1)
  1. SYNTHROID 88 MCG [Suspect]
     Indication: AUTOIMMUNE THYROIDITIS
     Dosage: 1 ONCE DAILY TAKEN BY MOUTH
     Route: 048
     Dates: start: 20020101, end: 20020202

REACTIONS (5)
  - Anxiety [None]
  - Dizziness [None]
  - Heart rate increased [None]
  - Activities of daily living impaired [None]
  - Product substitution issue [None]
